FAERS Safety Report 17040262 (Version 5)
Quarter: 2021Q4

REPORT INFORMATION
  Report Type: Spontaneous
  Country: FR (occurrence: FR)
  Receive Date: 20191116
  Receipt Date: 20211222
  Transmission Date: 20220303
  Serious: Yes (Disabling, Other)
  Sender: FDA-Public Use
  Company Number: FR-PFIZER INC-2019026674

PATIENT
  Age: 45 Year
  Sex: Male

DRUGS (12)
  1. PREGABALIN [Suspect]
     Active Substance: PREGABALIN
     Indication: Neuropathy peripheral
     Dosage: 25 MG, 4X/DAY (100 MG, QD)
     Route: 048
     Dates: start: 2014
  2. PREGABALIN [Suspect]
     Active Substance: PREGABALIN
     Indication: Neuralgia
     Dosage: 200 MG, DAILY, (25MG 8 TIMES PER DAY DAILY)
     Route: 048
  3. PREGABALIN [Suspect]
     Active Substance: PREGABALIN
     Dosage: 500 MILLIGRAM, QD (4 CAPSULES OF 125 MG, DAILY)
     Route: 048
  4. PREGABALIN [Suspect]
     Active Substance: PREGABALIN
     Dosage: 6 DOSAGE FORM, QD
  5. LYRICA [Suspect]
     Active Substance: PREGABALIN
     Indication: Neuropathy peripheral
     Dosage: 100 MILLIGRAM, QD 25 MG, 4X/DAY
     Dates: start: 2014
  6. LYRICA [Suspect]
     Active Substance: PREGABALIN
     Indication: Neuralgia
     Dosage: 200 MG, DAILY (25MG 8 TIMES PER DAY DAILY)
     Dates: start: 2014
  7. LYRICA [Suspect]
     Active Substance: PREGABALIN
     Indication: Pain
  8. PREGABALIN [Suspect]
     Active Substance: PREGABALIN
     Indication: Pain
     Dosage: 25 MG, 4X/DAY
     Route: 048
     Dates: start: 2014
  9. PREGABALIN [Suspect]
     Active Substance: PREGABALIN
     Indication: Neurogenic bladder
     Dosage: 200 MG, DAILY (25MG 8 TIMES PER DAY DAILY)
     Route: 048
  10. SILODOSIN [Concomitant]
     Active Substance: SILODOSIN
     Dosage: UNK
  11. SERENOA REPENS WHOLE [Concomitant]
     Active Substance: SERENOA REPENS WHOLE
     Dosage: UNK
  12. ALPRAZOLAM [Concomitant]
     Active Substance: ALPRAZOLAM
     Dosage: UNK

REACTIONS (22)
  - Formication [Unknown]
  - Hypertonic bladder [Unknown]
  - Generalised anxiety disorder [Unknown]
  - Nasal dryness [Unknown]
  - Confusional state [Unknown]
  - Memory impairment [Unknown]
  - Suicidal ideation [Recovered/Resolved]
  - Diplopia [Unknown]
  - Speech disorder [Unknown]
  - Fear [Unknown]
  - Feeling abnormal [Unknown]
  - Anxiety [Unknown]
  - Insomnia [Unknown]
  - Burning sensation [Unknown]
  - Sedation [Unknown]
  - Drug intolerance [Unknown]
  - Product use issue [Unknown]
  - Off label use [Unknown]
  - Drug ineffective [Unknown]
  - Panic attack [Unknown]
  - Intentional product use issue [Unknown]
  - Prescribed overdose [Unknown]

NARRATIVE: CASE EVENT DATE: 20140101
